FAERS Safety Report 7641505-X (Version None)
Quarter: 2011Q3

REPORT INFORMATION
  Report Type: 
  Country: None (occurrence: None)
  Receive Date: 20110722
  Receipt Date: 20110713
  Transmission Date: 20111222
  Serious: Yes (Other)
  Sender: FDA-Public Use
  Company Number: ABR_00180_2011

PATIENT
  Age: 24 Year
  Sex: Female
  Weight: 46 kg

DRUGS (2)
  1. ERYTHROMYCIN [Concomitant]
  2. ERYTHROMYCIN [Suspect]
     Indication: ACNE
     Dosage: (250 MG QD ORAL)
     Route: 048
     Dates: start: 20110614, end: 20110616

REACTIONS (4)
  - NAUSEA [None]
  - STRIDOR [None]
  - GASTROOESOPHAGEAL REFLUX DISEASE [None]
  - DYSPNOEA [None]
